FAERS Safety Report 6495176-9 (Version None)
Quarter: 2009Q4

REPORT INFORMATION
  Report Type: 
  Country: None (occurrence: None)
  Receive Date: 20091214
  Receipt Date: 20090508
  Transmission Date: 20100525
  Serious: Yes (Other)
  Sender: FDA-Public Use
  Company Number: US-BRISTOL-MYERS SQUIBB COMPANY-14617229

PATIENT
  Age: 6 Year
  Sex: Male
  Weight: 18 kg

DRUGS (2)
  1. ABILIFY [Suspect]
     Dosage: REDUCED TO 5 MG AGAIN INCREASED TO 10MG
  2. DEPAKOTE [Suspect]

REACTIONS (1)
  - OCULOGYRIC CRISIS [None]
